FAERS Safety Report 11938262 (Version 1)
Quarter: 2016Q1

REPORT INFORMATION
  Report Type: Spontaneous
  Country: JP (occurrence: JP)
  Receive Date: 20160122
  Receipt Date: 20160122
  Transmission Date: 20160526
  Serious: Yes (Death)
  Sender: FDA-Public Use
  Company Number: JP-009507513-1601JPN006520

PATIENT
  Age: 12 Year
  Sex: Female

DRUGS (3)
  1. BEVACIZUMAB [Suspect]
     Active Substance: BEVACIZUMAB
     Indication: PRODUCT USED FOR UNKNOWN INDICATION
     Dosage: UNK
  2. GLYCERIN/GLYCERIN (+) MENTHOL (+) XYLITOL [Suspect]
     Active Substance: GLYCERIN\MENTHOL\XYLITOL
     Indication: GLIOMA
     Dosage: UNK
  3. DEXAMETHASONE. [Suspect]
     Active Substance: DEXAMETHASONE
     Indication: GLIOMA
     Dosage: UNK

REACTIONS (8)
  - Hyperferritinaemia [None]
  - Pulmonary haemorrhage [None]
  - Pneumonia aspiration [None]
  - Pneumonia cytomegaloviral [Fatal]
  - Pancytopenia [None]
  - Respiratory failure [None]
  - Histiocytosis haematophagic [Fatal]
  - Off label use [Unknown]
